FAERS Safety Report 9227113 (Version 1)
Quarter: 2013Q2

REPORT INFORMATION
  Report Type: Spontaneous
  Country: US (occurrence: None)
  Receive Date: 20130410
  Receipt Date: 20130410
  Transmission Date: 20140414
  Serious: No
  Sender: FDA-Public Use
  Company Number: None

PATIENT
  Age: 70 Year
  Sex: Female
  Weight: 75.7 kg

DRUGS (1)
  1. RIVAROXABAN 10 MG JANSSEN [Suspect]
     Dosage: 10 MG DAILY PO
     Route: 048

REACTIONS (1)
  - Pruritus [None]
